FAERS Safety Report 11694077 (Version 2)
Quarter: 2016Q2

REPORT INFORMATION
  Report Type: Spontaneous
  Country: FR (occurrence: FR)
  Receive Date: 20151103
  Receipt Date: 20160530
  Transmission Date: 20160815
  Serious: Yes (Life-Threatening, Hospitalization)
  Sender: FDA-Public Use
  Company Number: FR-PFIZER INC-2015367221

PATIENT
  Age: 65 Year
  Sex: Female

DRUGS (14)
  1. ESIDREX [Suspect]
     Active Substance: HYDROCHLOROTHIAZIDE
     Dosage: 12.5 MG, 1X/DAY
  2. THERALENE [Suspect]
     Active Substance: TRIMEPRAZINE
     Dosage: 50 GTT, 1X/DAY
  3. NORSET [Suspect]
     Active Substance: MIRTAZAPINE
     Dosage: 15 MG, 3X/DAY
  4. ACUPAN [Suspect]
     Active Substance: NEFOPAM HYDROCHLORIDE
     Dosage: UNK, AS NEEDED
  5. HALDOL [Suspect]
     Active Substance: HALOPERIDOL
     Dosage: 2 MG, 1X/DAY
  6. COUMADINE [Suspect]
     Active Substance: WARFARIN SODIUM
     Dosage: 5 MG, 1X/DAY
  7. TRILEPTAL [Suspect]
     Active Substance: OXCARBAZEPINE
     Dosage: 1500 MG, DAILY (600 MG IN THE MORNING AND 900 MG IN THE EVENING)
  8. SERESTA [Suspect]
     Active Substance: OXAZEPAM
     Dosage: 10 MG, 4X/DAY
  9. LANSOPRAZOLE ARROW [Suspect]
     Active Substance: LANSOPRAZOLE
     Dosage: 15 MG, 1X/DAY
  10. AMLOR [Suspect]
     Active Substance: AMLODIPINE BESYLATE
     Dosage: 5 MG, 2X/DAY
  11. IXPRIM [Suspect]
     Active Substance: ACETAMINOPHEN\TRAMADOL HYDROCHLORIDE
     Dosage: 2DF IN THE MORNING AND 2DF THE EVENING)
  12. TAHOR [Suspect]
     Active Substance: ATORVASTATIN CALCIUM
     Dosage: 10 MG, 2X/DAY
  13. FOLIC ACID. [Suspect]
     Active Substance: FOLIC ACID
     Dosage: 5 MG, 2X/DAY
  14. PARACETAMOL [Concomitant]
     Active Substance: ACETAMINOPHEN
     Dosage: 500 MG, 3X/DAY

REACTIONS (5)
  - Coma [Recovered/Resolved]
  - Cardio-respiratory arrest [Recovered/Resolved]
  - Bradycardia [Recovered/Resolved]
  - Toxicity to various agents [Recovered/Resolved]
  - Hypotension [Recovered/Resolved]

NARRATIVE: CASE EVENT DATE: 20150422
